FAERS Safety Report 17540221 (Version 1)
Quarter: 2020Q1

REPORT INFORMATION
  Report Type: Spontaneous
  Country: GB (occurrence: GB)
  Receive Date: 20200313
  Receipt Date: 20200313
  Transmission Date: 20200409
  Serious: No
  Sender: FDA-Public Use
  Company Number: GB-EMD SERONO-9149875

PATIENT
  Sex: Female

DRUGS (2)
  1. MAVENCLAD [Suspect]
     Active Substance: CLADRIBINE
     Indication: MULTIPLE SCLEROSIS
     Dosage: FIRST YEAR THERAPY.
     Route: 048
     Dates: start: 201902
  2. MAVENCLAD [Suspect]
     Active Substance: CLADRIBINE
     Dosage: SECOND YEAR FIRST WEEK THERAPY: THE PATIENT RECEIVED TWO TABLETS (EACH OF 10 MG) ON DAYS 1 TO 2 AND
     Route: 048

REACTIONS (2)
  - Mental disorder [Unknown]
  - Hair texture abnormal [Unknown]
